FAERS Safety Report 18316731 (Version 1)
Quarter: 2020Q3

REPORT INFORMATION
  Report Type: Spontaneous
  Country: LB (occurrence: LB)
  Receive Date: 20200928
  Receipt Date: 20200928
  Transmission Date: 20201103
  Serious: Yes (Hospitalization)
  Sender: FDA-Public Use
  Company Number: LB-BEH-2020122715

PATIENT
  Age: 1 Year
  Sex: Female
  Weight: 9.5 kg

DRUGS (4)
  1. HAEMOCOMPLETTAN P [Suspect]
     Active Substance: FIBRINOGEN HUMAN
     Indication: MOUTH HAEMORRHAGE
     Dosage: 1 GRAM (8 ML/MN)
     Route: 042
  2. HAEMOCOMPLETTAN P [Suspect]
     Active Substance: FIBRINOGEN HUMAN
     Indication: HAEMORRHAGE
     Dosage: 1 GRAM (4 ML/MN)
     Route: 042
  3. HAEMOCOMPLETTAN P [Suspect]
     Active Substance: FIBRINOGEN HUMAN
     Indication: EPISTAXIS
     Dosage: 1 GRAM (4 ML/MN)
     Route: 042
  4. HAEMOCOMPLETTAN P [Suspect]
     Active Substance: FIBRINOGEN HUMAN
     Indication: HAEMORRHAGE PROPHYLAXIS
     Dosage: 10?15 CC

REACTIONS (9)
  - Anaphylactic reaction [Recovered/Resolved]
  - Bronchospasm [Recovered/Resolved]
  - Chills [Recovered/Resolved]
  - Anaphylactic shock [Recovered/Resolved]
  - Cyanosis [Recovered/Resolved]
  - Pyrexia [Recovered/Resolved]
  - Pruritus [Recovered/Resolved]
  - Hypotension [Recovered/Resolved]
  - Dyspnoea [Recovered/Resolved]

NARRATIVE: CASE EVENT DATE: 20200824
